FAERS Safety Report 6259612-5 (Version None)
Quarter: 2009Q3

REPORT INFORMATION
  Report Type: 
  Country: None (occurrence: None)
  Receive Date: 20090708
  Receipt Date: 20090529
  Transmission Date: 20100115
  Serious: Yes (Other)
  Sender: FDA-Public Use
  Company Number: AU-JNJFOC-20090701067

PATIENT
  Age: 7 Year
  Sex: Male

DRUGS (2)
  1. SPORANOX [Suspect]
     Indication: DRUG USE FOR UNKNOWN INDICATION
     Route: 048
  2. SPORANOX [Suspect]
     Route: 048

REACTIONS (1)
  - DRUG LEVEL INCREASED [None]
